FAERS Safety Report 7179004-4 (Version None)
Quarter: 2010Q4

REPORT INFORMATION
  Report Type: 
  Country: None (occurrence: None)
  Receive Date: 20101221
  Receipt Date: 20101214
  Transmission Date: 20110411
  Serious: Yes (Life-Threatening, Hospitalization, Disabling, Other)
  Sender: FDA-Public Use
  Company Number: PHHY2010CA85087

PATIENT
  Sex: Female

DRUGS (2)
  1. CLOZARIL [Suspect]
     Indication: SCHIZOPHRENIA
     Dosage: 500 MG, QHS
     Route: 048
     Dates: start: 20050419
  2. METFORMIN HCL [Concomitant]
     Dosage: 500 MG, BID
     Dates: start: 20101215

REACTIONS (6)
  - ABDOMINAL PAIN [None]
  - DIABETES MELLITUS [None]
  - MUSCLE INCISION [None]
  - NEOPLASM MALIGNANT [None]
  - SURGERY [None]
  - WOUND INFECTION [None]
